FAERS Safety Report 20729867 (Version 1)
Quarter: 2022Q2

REPORT INFORMATION
  Report Type: Other
  Country: CA (occurrence: CA)
  Receive Date: 20220420
  Receipt Date: 20220420
  Transmission Date: 20220721
  Serious: Yes (Hospitalization)
  Sender: FDA-Public Use
  Company Number: CA-PFIZER INC-202200544887

PATIENT
  Age: 32 Year
  Sex: Female

DRUGS (2)
  1. OXALIPLATIN [Suspect]
     Active Substance: OXALIPLATIN
     Indication: Rectal cancer
     Dosage: 130 MG/M2
  2. CAPECITABINE [Suspect]
     Active Substance: CAPECITABINE
     Indication: Rectal cancer
     Dosage: 1000 MG/M2, 2X/DAY
     Route: 048

REACTIONS (6)
  - Blood lactic acid increased [Recovered/Resolved]
  - Cardiac failure acute [Recovered/Resolved]
  - Cardiomyopathy [Recovered/Resolved]
  - Cardiotoxicity [Recovered/Resolved]
  - Pulmonary oedema [Recovered/Resolved]
  - Cardiogenic shock [Recovered/Resolved]
